FAERS Safety Report 4461656-0 (Version None)
Quarter: 2004Q3

REPORT INFORMATION
  Report Type: 
  Country: None (occurrence: None)
  Receive Date: 20040923
  Receipt Date: 20040921
  Transmission Date: 20050211
  Serious: Yes (Hospitalization, Other)
  Sender: FDA-Public Use
  Company Number: FRWYE999424AUG04

PATIENT
  Age: 75 Year
  Sex: Female

DRUGS (8)
  1. EFFEXOR LP (VENLAFAXINE HYDROCHLORIDE,  EXTENDED RELEASE) [Suspect]
     Indication: DEPRESSION
     Dosage: 37.5 MG 2X PER 1 DAY ORAL
     Route: 048
     Dates: start: 20040801, end: 20040816
  2. IMOVANE (ZOPICLONE, ,0) [Suspect]
     Indication: INSOMNIA
     Dosage: 0.5 TABLET 1X PER 1 DAY ORAL
     Route: 048
     Dates: start: 20040501, end: 20040816
  3. URBANYL (CLOBAZAM, ,0) [Suspect]
     Indication: ANXIETY
     Dosage: 1 TABLET 3X PER 1 DAY ORAL
     Route: 048
     Dates: start: 20040501, end: 20040816
  4. STABLON (TIANEPTINE) [Concomitant]
  5. FENOFIBRATE [Concomitant]
  6. RAMIPRIL [Concomitant]
  7. IKOREL (NICORANDIL) [Concomitant]
  8. PREVISCAN (FLUINDIONE) [Concomitant]

REACTIONS (4)
  - DEHYDRATION [None]
  - DRUG INTERACTION [None]
  - DRUG LEVEL ABOVE THERAPEUTIC [None]
  - SOMNOLENCE [None]
